FAERS Safety Report 6712998-7 (Version None)
Quarter: 2010Q2

REPORT INFORMATION
  Report Type: 
  Country: None (occurrence: None)
  Receive Date: 20100505
  Receipt Date: 20100505
  Transmission Date: 20101027
  Serious: Yes (Other)
  Sender: FDA-Public Use
  Company Number: None

PATIENT
  Sex: Male

DRUGS (2)
  1. VANCOMYCIN [Suspect]
     Indication: PROPHYLAXIS
     Dosage: 1GM IV
     Route: 042
     Dates: start: 20100219, end: 20100219
  2. VANCOMYCIN [Suspect]
     Indication: SURGERY
     Dosage: 1GM IV
     Route: 042
     Dates: start: 20100219, end: 20100219

REACTIONS (6)
  - DOCUMENTED HYPERSENSITIVITY TO ADMINISTERED DRUG [None]
  - EYE SWELLING [None]
  - OXYGEN SATURATION DECREASED [None]
  - PHARYNGEAL OEDEMA [None]
  - PRURITUS GENERALISED [None]
  - REFUSAL OF TREATMENT BY PATIENT [None]
